FAERS Safety Report 11728985 (Version 2)
Quarter: 2015Q4

REPORT INFORMATION
  Report Type: Spontaneous
  Country: US (occurrence: US)
  Receive Date: 20151112
  Receipt Date: 20151116
  Transmission Date: 20160304
  Serious: Yes (Hospitalization, Other)
  Sender: FDA-Public Use
  Company Number: US-PFIZER INC-2015381871

PATIENT
  Age: 62 Year
  Sex: Male
  Weight: 104 kg

DRUGS (3)
  1. LIPITOR [Suspect]
     Active Substance: ATORVASTATIN CALCIUM
     Indication: BLOOD CHOLESTEROL
     Dosage: UNK
     Dates: start: 20150829, end: 20151019
  2. FLOMAX [Concomitant]
     Active Substance: TAMSULOSIN HYDROCHLORIDE
     Dosage: UNK
  3. LIPITOR [Suspect]
     Active Substance: ATORVASTATIN CALCIUM
     Dosage: 40 MG TABLET 1 A DAY
     Route: 048
     Dates: start: 20151019

REACTIONS (13)
  - Pain in extremity [Recovering/Resolving]
  - Arthralgia [Not Recovered/Not Resolved]
  - Muscle atrophy [Unknown]
  - Balance disorder [Not Recovered/Not Resolved]
  - Dizziness [Recovered/Resolved]
  - Arthralgia [Recovered/Resolved]
  - Rheumatic disorder [Unknown]
  - Muscular weakness [Not Recovered/Not Resolved]
  - Retching [Recovered/Resolved]
  - Gout [Not Recovered/Not Resolved]
  - Vertigo [Recovered/Resolved]
  - Hyperhidrosis [Recovered/Resolved]
  - Fatigue [Unknown]

NARRATIVE: CASE EVENT DATE: 201509
